FAERS Safety Report 7690978-5 (Version None)
Quarter: 2011Q3

REPORT INFORMATION
  Report Type: 
  Country: None (occurrence: None)
  Receive Date: 20110818
  Receipt Date: 20110817
  Transmission Date: 20111222
  Serious: Yes (Death)
  Sender: FDA-Public Use
  Company Number: AU-PFIZER INC-2011188843

PATIENT
  Age: 31 Year
  Sex: Female

DRUGS (5)
  1. EFFEXOR XR [Suspect]
     Dosage: 75 MG, UNK
     Dates: start: 20090101, end: 20090106
  2. EFFEXOR XR [Suspect]
     Dosage: 150 MG, UNK
     Dates: start: 20090107
  3. OLANZAPINE [Concomitant]
     Dosage: 2.5 MG, UNK
  4. OLANZAPINE [Concomitant]
     Indication: PSYCHOTIC DISORDER
     Dosage: 5 MG, UNK
     Dates: start: 20080401
  5. EFFEXOR XR [Suspect]
     Dosage: 37.5 MG, UNK
     Dates: start: 20081129, end: 20090101

REACTIONS (1)
  - COMPLETED SUICIDE [None]
